FAERS Safety Report 9239685 (Version 2)
Quarter: 2013Q2

REPORT INFORMATION
  Report Type: Report from Study
  Country: US (occurrence: US)
  Receive Date: 20130418
  Receipt Date: 20130510
  Transmission Date: 20140414
  Serious: Yes (Other)
  Sender: FDA-Public Use
  Company Number: US-BAYER-2013-000530

PATIENT
  Age: 61 Year
  Sex: Female

DRUGS (5)
  1. STIVARGA [Suspect]
     Indication: GASTRIC CANCER
     Dosage: 160 MG, QD
     Route: 048
     Dates: start: 20121217, end: 20121219
  2. STIVARGA [Suspect]
     Indication: GASTROINTESTINAL CARCINOMA
     Dosage: 160 MG, QD (4 TABLETS, QD)
     Route: 048
     Dates: start: 20121225
  3. STIVARGA [Suspect]
     Indication: COLON CANCER
     Dosage: 160 MG, QD (4 TABLETS, QD)
     Route: 048
     Dates: start: 20130120
  4. STIVARGA [Suspect]
     Indication: GASTRIC CANCER
     Dosage: 160 MG, QD
     Route: 048
     Dates: start: 201302
  5. STIVARGA [Suspect]
     Indication: GASTRIC CANCER
     Dosage: UNK
     Route: 048
     Dates: start: 2013

REACTIONS (26)
  - Paraesthesia [None]
  - Hypoaesthesia [None]
  - Postrenal failure [Recovering/Resolving]
  - Haematochezia [None]
  - Hepatic failure [None]
  - Infection [None]
  - Dyspnoea [None]
  - Anaemia [Not Recovered/Not Resolved]
  - Off label use [None]
  - Abdominal pain upper [None]
  - Fatigue [Not Recovered/Not Resolved]
  - Hyperaesthesia [Not Recovered/Not Resolved]
  - Pyrexia [None]
  - Somnolence [None]
  - Blood pressure increased [None]
  - Asthenia [None]
  - Dizziness [None]
  - Tremor [None]
  - Heart rate increased [None]
  - Decreased appetite [None]
  - Gastrointestinal disorder [None]
  - Laboratory test abnormal [None]
  - Eating disorder [None]
  - Gastric disorder [None]
  - Hypertension [None]
  - Heart rate increased [None]
